FAERS Safety Report 4506963-8 (Version None)
Quarter: 2004Q4

REPORT INFORMATION
  Report Type: 
  Country: None (occurrence: None)
  Receive Date: 20041117
  Receipt Date: 20041104
  Transmission Date: 20050328
  Serious: Yes (Death, Congenital Anomaly, Other)
  Sender: FDA-Public Use
  Company Number: 060001M04DNK

PATIENT
  Sex: Male

DRUGS (1)
  1. SEROPHENE [Suspect]
     Indication: INFERTILITY
     Dosage: 50 MG, 1 IN 1 DAYS,TRANSPLACENTAL
     Route: 064

REACTIONS (4)
  - DRUG EXPOSURE DURING PREGNANCY [None]
  - POTTER'S SYNDROME [None]
  - PREMATURE BABY [None]
  - STILLBIRTH [None]
